FAERS Safety Report 16417582 (Version 6)
Quarter: 2022Q4

REPORT INFORMATION
  Report Type: Spontaneous
  Country: US (occurrence: US)
  Receive Date: 20190611
  Receipt Date: 20221209
  Transmission Date: 20230113
  Serious: Yes (Other)
  Sender: FDA-Public Use
  Company Number: US-PFIZER INC-2015463050

PATIENT
  Age: 45 Year
  Sex: Male

DRUGS (6)
  1. RAPAMUNE [Suspect]
     Active Substance: SIROLIMUS
     Indication: Prophylaxis against transplant rejection
     Dosage: 3 MG, DAILY
     Route: 048
  2. RAPAMUNE [Suspect]
     Active Substance: SIROLIMUS
     Dosage: 1 MG, DAILY
     Route: 048
  3. RAPAMUNE [Suspect]
     Active Substance: SIROLIMUS
     Dosage: 2 MG (1 TABLET OF 2 MG), DAILY
     Route: 048
     Dates: start: 202107
  4. RAPAMUNE [Suspect]
     Active Substance: SIROLIMUS
     Dosage: 4 MG (2 TABLET OF 2 MG), DAILY
     Route: 048
     Dates: start: 2021
  5. RAPAMUNE [Suspect]
     Active Substance: SIROLIMUS
     Dosage: 2 MG, 1X/DAY (2MG TABLET, 1 TABLET (2MG EACH) EVERY DAY)
  6. RAPAMUNE [Suspect]
     Active Substance: SIROLIMUS
     Dosage: 2 MG, 2X/DAY (TWO TABLETS EVERY 12 HOURS)
     Route: 048

REACTIONS (2)
  - Hernia [Unknown]
  - Intentional product use issue [Unknown]

NARRATIVE: CASE EVENT DATE: 20210101
